FAERS Safety Report 15947842 (Version 8)
Quarter: 2022Q2

REPORT INFORMATION
  Report Type: Spontaneous
  Country: US (occurrence: None)
  Receive Date: 20190212
  Receipt Date: 20220422
  Transmission Date: 20220720
  Serious: Yes (Death, Other)
  Sender: FDA-Public Use
  Company Number: 2018SF13771

PATIENT
  Age: 21619 Day
  Sex: Female
  Weight: 63.5 kg

DRUGS (18)
  1. NEXIUM [Suspect]
     Active Substance: ESOMEPRAZOLE MAGNESIUM
     Dosage: 40 MG DAILY
     Route: 048
  2. PRILOSEC [Suspect]
     Active Substance: OMEPRAZOLE MAGNESIUM
     Dosage: 40 MG DAILY
     Route: 048
  3. PRILOSEC OTC [Suspect]
     Active Substance: OMEPRAZOLE MAGNESIUM
     Indication: Gastritis
     Dosage: 20 MG DAILY
     Route: 048
     Dates: start: 2007, end: 2014
  4. PROTONIX [Suspect]
     Active Substance: PANTOPRAZOLE SODIUM
     Indication: Gastritis
     Route: 065
     Dates: start: 20110325, end: 20110328
  5. PROTONIX [Suspect]
     Active Substance: PANTOPRAZOLE SODIUM
     Indication: Gastritis
     Dosage: GENERIC
     Route: 065
  6. PROTONIX [Suspect]
     Active Substance: PANTOPRAZOLE SODIUM
     Indication: Gastritis
     Route: 065
     Dates: start: 20110328
  7. PREVACID [Suspect]
     Active Substance: LANSOPRAZOLE
     Dosage: 40 MG DAILY
     Route: 065
  8. MORPHINE SULFATE [Concomitant]
     Active Substance: MORPHINE SULFATE
  9. ACETAMINOPHEN [Concomitant]
     Active Substance: ACETAMINOPHEN
  10. LINIZOLID [Concomitant]
  11. SALMETEROL [Concomitant]
     Active Substance: SALMETEROL
  12. LABETALOL [Concomitant]
     Active Substance: LABETALOL\LABETALOL HYDROCHLORIDE
  13. NAPROSYN [Concomitant]
     Active Substance: NAPROXEN
     Dates: start: 20130402
  14. KEFLEX [Concomitant]
     Active Substance: CEPHALEXIN
     Dates: start: 20130402
  15. TAMIFLU [Concomitant]
     Active Substance: OSELTAMIVIR PHOSPHATE
     Dates: start: 20140120
  16. FENTANYL [Concomitant]
     Active Substance: FENTANYL
  17. GLUCAGEN [Concomitant]
     Active Substance: GLUCAGON HYDROCHLORIDE
  18. HUMALOG [Concomitant]
     Active Substance: INSULIN LISPRO

REACTIONS (6)
  - Respiratory failure [Fatal]
  - Pneumonia viral [Fatal]
  - Acute kidney injury [Unknown]
  - Renal injury [Unknown]
  - Renal failure [Unknown]
  - Chronic kidney disease [Unknown]

NARRATIVE: CASE EVENT DATE: 20140113
